FAERS Safety Report 6391871-0 (Version None)
Quarter: 2009Q4

REPORT INFORMATION
  Report Type: 
  Country: None (occurrence: None)
  Receive Date: 20091007
  Receipt Date: 20090928
  Transmission Date: 20100525
  Serious: Yes (Death, Hospitalization)
  Sender: FDA-Public Use
  Company Number: FR-ELI_LILLY_AND_COMPANY-FR200909001166

PATIENT
  Age: 72 Year
  Sex: Female
  Weight: 52 kg

DRUGS (2)
  1. FORTEO [Suspect]
     Indication: OSTEOPOROSIS
     Dosage: 20 UG, DAILY (1/D)
     Route: 058
     Dates: start: 20070501, end: 20081001
  2. ADVIL LIQUI-GELS [Concomitant]
     Indication: PAIN
     Dosage: 400 MG, 2/D
     Route: 048
     Dates: start: 20080320

REACTIONS (1)
  - ADENOCARCINOMA [None]
